FAERS Safety Report 24467388 (Version 1)
Quarter: 2024Q4

REPORT INFORMATION
  Report Type: Report from Study
  Country: US (occurrence: US)
  Receive Date: 20241018
  Receipt Date: 20241018
  Transmission Date: 20250115
  Serious: No
  Sender: ROCHE
  Company Number: US-ROCHE-3555417

PATIENT

DRUGS (1)
  1. XOLAIR [Suspect]
     Active Substance: OMALIZUMAB
     Indication: Product used for unknown indication
     Dosage: 300 (2 SHOTS) EVERY 28 DAYS GIVEN AT THE SAME TIME (BACK OF ARM), AND IT JUST GOT DOUBLED TO 600.
     Route: 065

REACTIONS (6)
  - Skin disorder [Unknown]
  - Vomiting [Unknown]
  - Gastrointestinal disorder [Unknown]
  - Off label use [Unknown]
  - Haemorrhage [Unknown]
  - Urticaria [Unknown]
